FAERS Safety Report 14641417 (Version 1)
Quarter: 2018Q1

REPORT INFORMATION
  Report Type: Spontaneous
  Country: ES (occurrence: ES)
  Receive Date: 20180315
  Receipt Date: 20180315
  Transmission Date: 20180509
  Serious: Yes (Hospitalization, Other)
  Sender: FDA-Public Use
  Company Number: ES-ELI_LILLY_AND_COMPANY-ES201803002729

PATIENT
  Age: 57 Year
  Sex: Female

DRUGS (2)
  1. ABRAXANE [Suspect]
     Active Substance: PACLITAXEL
     Indication: PANCREATIC CARCINOMA METASTATIC
     Dosage: UNK, UNKNOWN
     Route: 041
     Dates: start: 20170112
  2. GEMCITABINE HYDROCHLORIDE. [Suspect]
     Active Substance: GEMCITABINE HYDROCHLORIDE
     Indication: PANCREATIC CARCINOMA METASTATIC
     Dosage: UNK UNK, UNKNOWN
     Route: 065
     Dates: start: 20170112

REACTIONS (6)
  - Lymphoedema [Unknown]
  - Neutropenia [Unknown]
  - Pleural effusion [Unknown]
  - Thrombocytopenia [Unknown]
  - Phlebitis [Unknown]
  - Ascites [Unknown]

NARRATIVE: CASE EVENT DATE: 201711
